FAERS Safety Report 18313268 (Version 1)
Quarter: 2020Q3

REPORT INFORMATION
  Report Type: Spontaneous
  Country: FR (occurrence: FR)
  Receive Date: 20200925
  Receipt Date: 20200925
  Transmission Date: 20201103
  Serious: Yes (Hospitalization)
  Sender: FDA-Public Use
  Company Number: FR-CADILA HEALTHCARE LIMITED-FR-ZYDUS-023298

PATIENT

DRUGS (7)
  1. IRBESARTAN. [Suspect]
     Active Substance: IRBESARTAN
     Dosage: 150 MILLIGRAM,IN TOTAL
     Route: 048
     Dates: start: 20180731
  2. EUPRESSYL [Suspect]
     Active Substance: URAPIDIL
     Indication: MEDICATION ERROR
     Dosage: 30 MILLIGRAM,(INTERVAL :1 TOTAL)
     Route: 048
     Dates: start: 20180731
  3. PANTOPRAZOLE [Suspect]
     Active Substance: PANTOPRAZOLE
     Indication: MEDICATION ERROR
     Dosage: 40 MILLIGRAM,IN TOTAL,(INTERVAL :1 TOTAL)
     Dates: end: 20180731
  4. ALLOPURINOL. [Suspect]
     Active Substance: ALLOPURINOL
     Indication: MEDICATION ERROR
     Dosage: 100 MILLIGRAM,(INTERVAL :1 TOTAL)
     Route: 048
     Dates: start: 20180731
  5. BISOPROLOL [Suspect]
     Active Substance: BISOPROLOL
     Indication: MEDICATION ERROR
     Dosage: 5 MILLIGRAM,IN TOTAL,(INTERVAL :1 TOTAL)
     Route: 048
     Dates: start: 20180731
  6. LERCAN [Suspect]
     Active Substance: LERCANIDIPINE
     Indication: MEDICATION ERROR
     Dosage: 10 MILLIGRAM,IN TOTAL,(INTERVAL :1 TOTAL)
     Route: 048
     Dates: start: 20180731
  7. OFLOCET [Suspect]
     Active Substance: OFLOXACIN
     Indication: MEDICATION ERROR
     Dosage: 200 MILLIGRAM,IN TOTAL,(INTERVAL :1 TOTAL)
     Route: 048
     Dates: start: 20180731

REACTIONS (3)
  - Hypotension [Recovered/Resolved]
  - Bradycardia [Recovered/Resolved]
  - Medication error [Recovered/Resolved]

NARRATIVE: CASE EVENT DATE: 20180731
